FAERS Safety Report 9817206 (Version 1)
Quarter: 2014Q1

REPORT INFORMATION
  Report Type: Report from Study
  Country: US (occurrence: US)
  Receive Date: 20140114
  Receipt Date: 20140114
  Transmission Date: 20141002
  Serious: Yes (Death)
  Sender: FDA-Public Use
  Company Number: US-ROCHE-1333457

PATIENT
  Sex: Female

DRUGS (7)
  1. AVASTIN [Suspect]
     Indication: PRODUCT USED FOR UNKNOWN INDICATION
     Route: 042
     Dates: start: 20110217
  2. AVASTIN [Suspect]
     Route: 042
     Dates: start: 20110322
  3. KYTRIL [Suspect]
     Indication: PRODUCT USED FOR UNKNOWN INDICATION
     Route: 042
  4. BENADRYL (UNITED STATES) [Concomitant]
     Route: 042
  5. ATIVAN [Concomitant]
     Route: 042
  6. ZANTAC [Concomitant]
     Route: 042
  7. GEMZAR [Concomitant]
     Route: 042

REACTIONS (1)
  - Death [Fatal]
